FAERS Safety Report 10506681 (Version 1)
Quarter: 2014Q4

REPORT INFORMATION
  Report Type: Spontaneous
  Country: US (occurrence: US)
  Receive Date: 20141009
  Receipt Date: 20141009
  Transmission Date: 20150528
  Serious: No
  Sender: FDA-Public Use
  Company Number: US-009507513-1409USA014570

PATIENT
  Sex: Male

DRUGS (1)
  1. DULERA [Suspect]
     Active Substance: FORMOTEROL FUMARATE DIHYDRATE\MOMETASONE FUROATE
     Dosage: 200 MICROGRAM/5 MICROGRAM, ON PUFF, BID
     Route: 055
     Dates: start: 201403, end: 201404

REACTIONS (3)
  - Drug dose omission [Unknown]
  - Respiratory disorder [Unknown]
  - Underdose [Unknown]

NARRATIVE: CASE EVENT DATE: 201403
